FAERS Safety Report 13999037 (Version 1)
Quarter: 2017Q3

REPORT INFORMATION
  Report Type: Spontaneous
  Country: JP (occurrence: JP)
  Receive Date: 20170922
  Receipt Date: 20170922
  Transmission Date: 20171128
  Serious: Yes (Death, Other)
  Sender: FDA-Public Use
  Company Number: JP-GLAXOSMITHKLINE-JP2017JPN145029

PATIENT
  Age: 26 Year
  Sex: Male

DRUGS (1)
  1. ZINNAT [Suspect]
     Active Substance: CEFUROXIME AXETIL
     Dosage: UNK MG, UNK
     Route: 048
     Dates: start: 200006

REACTIONS (2)
  - Oculomucocutaneous syndrome [Unknown]
  - Pneumonia [Fatal]
